FAERS Safety Report 21746805 (Version 1)
Quarter: 2022Q4

REPORT INFORMATION
  Report Type: Spontaneous
  Country: US (occurrence: US)
  Receive Date: 20221219
  Receipt Date: 20221219
  Transmission Date: 20230113
  Serious: No
  Sender: FDA-Public Use
  Company Number: US-SA-SAC20221214001139

PATIENT
  Sex: Female

DRUGS (15)
  1. AUBAGIO [Suspect]
     Active Substance: TERIFLUNOMIDE
     Indication: Multiple sclerosis
     Dosage: 14 MG, QD
     Route: 048
     Dates: start: 202106
  2. CETIRIZINE HCL [Concomitant]
     Active Substance: CETIRIZINE HYDROCHLORIDE
  3. TRIAMCINOLONE ACETONIDE [Concomitant]
     Active Substance: TRIAMCINOLONE ACETONIDE
  4. .BETA.-CAROTENE [Concomitant]
     Active Substance: .BETA.-CAROTENE
  5. HYDROCHLOROTHIAZIDE [Concomitant]
     Active Substance: HYDROCHLOROTHIAZIDE
  6. RESTASIS [Concomitant]
     Active Substance: CYCLOSPORINE
  7. CALTRATE JR [Concomitant]
  8. ZYRTEC [Concomitant]
     Active Substance: CETIRIZINE HYDROCHLORIDE
  9. SUCRALFATE [Concomitant]
     Active Substance: SUCRALFATE
  10. PANTOPRAZOLE SODIUM [Concomitant]
     Active Substance: PANTOPRAZOLE SODIUM
  11. LOSARTAN POTASSIUM [Concomitant]
     Active Substance: LOSARTAN POTASSIUM
  12. FAMOTIDINE [Concomitant]
     Active Substance: FAMOTIDINE
  13. PREDNISONE [Concomitant]
     Active Substance: PREDNISONE
  14. FERROUS SULFATE [Concomitant]
     Active Substance: FERROUS SULFATE
  15. ALBUTEROL SULFATE [Concomitant]
     Active Substance: ALBUTEROL SULFATE
     Dosage: 32565MG

REACTIONS (3)
  - Musculoskeletal disorder [Unknown]
  - Condition aggravated [Unknown]
  - Product dose omission issue [Unknown]
